FAERS Safety Report 4657243-1 (Version None)
Quarter: 2005Q2

REPORT INFORMATION
  Report Type: 
  Country: None (occurrence: None)
  Receive Date: 20050506
  Receipt Date: 20050427
  Transmission Date: 20051028
  Serious: Yes (Other)
  Sender: FDA-Public Use
  Company Number: 2005040227

PATIENT
  Age: 73 Year
  Sex: Female
  Weight: 61.2356 kg

DRUGS (11)
  1. CELEBREX [Suspect]
     Indication: ARTHRITIS
     Dosage: 100 MG (100 MG, 1 IN 1 D), ORAL
     Route: 048
     Dates: start: 20000101
  2. PRINZIDE [Concomitant]
  3. RANITIDINE [Concomitant]
  4. ESCITALOPRAM OXALATE [Concomitant]
  5. POTASSIUM ACETATE [Concomitant]
  6. FEXOFENADINE HYDROCHLORIDE [Concomitant]
  7. LEVOTHYROXINE SODIUM [Concomitant]
  8. FELODIPINE [Concomitant]
  9. ASPIRIN [Concomitant]
  10. LOVASTATIN [Concomitant]
  11. NICOTINIC ACID [Concomitant]

REACTIONS (4)
  - BRONCHITIS [None]
  - PNEUMONIA PRIMARY ATYPICAL [None]
  - PYELONEPHRITIS [None]
  - URINARY TRACT INFECTION [None]
